FAERS Safety Report 8459721-6 (Version None)
Quarter: 2012Q2

REPORT INFORMATION
  Report Type: 
  Country: None (occurrence: None)
  Receive Date: 20120622
  Receipt Date: 20120614
  Transmission Date: 20120825
  Serious: Yes (Hospitalization, Disabling, Other)
  Sender: FDA-Public Use
  Company Number: US-MERCK-1010USA02482

PATIENT
  Age: 48 Year
  Sex: Female
  Weight: 58 kg

DRUGS (9)
  1. FOSAMAX [Suspect]
     Indication: OSTEOPOROSIS
     Route: 048
     Dates: start: 20001003, end: 20030717
  2. FOSAMAX [Suspect]
     Route: 048
     Dates: start: 20030717, end: 20081126
  3. FOSAMAX [Suspect]
     Route: 048
     Dates: start: 19980814, end: 19990618
  4. ALENDRONATE SODIUM [Suspect]
     Indication: OSTEOPOROSIS
     Route: 048
     Dates: start: 20081126, end: 20100601
  5. ALENDRONATE SODIUM [Suspect]
     Indication: OSTEOPENIA
     Route: 048
     Dates: start: 20081126, end: 20100601
  6. FOSAMAX [Suspect]
     Route: 048
     Dates: start: 19980814, end: 19990618
  7. FOSAMAX [Suspect]
     Indication: OSTEOPOROSIS PROPHYLAXIS
     Route: 048
     Dates: start: 20001003, end: 20030717
  8. FOSAMAX [Suspect]
     Route: 048
     Dates: start: 20030717, end: 20081126
  9. SYNTHROID [Concomitant]
     Indication: HYPOTHYROIDISM
     Route: 048
     Dates: start: 19980701

REACTIONS (20)
  - FRACTURE DELAYED UNION [None]
  - FOOT FRACTURE [None]
  - RHINITIS ALLERGIC [None]
  - OVARIAN CYST [None]
  - UTERINE DISORDER [None]
  - BRONCHITIS [None]
  - SEBORRHOEIC KERATOSIS [None]
  - LOW TURNOVER OSTEOPATHY [None]
  - EUSTACHIAN TUBE DYSFUNCTION [None]
  - BACK PAIN [None]
  - FEMUR FRACTURE [None]
  - OTITIS EXTERNA [None]
  - SINUSITIS [None]
  - BREAST CYST [None]
  - OVARIAN DISORDER [None]
  - UPPER RESPIRATORY TRACT INFECTION [None]
  - TOOTH DISORDER [None]
  - CHRONIC SINUSITIS [None]
  - BREAST PROSTHESIS REMOVAL [None]
  - ADVERSE DRUG REACTION [None]
